FAERS Safety Report 13285199 (Version 1)
Quarter: 2017Q1

REPORT INFORMATION
  Report Type: Report from Study
  Country: None (occurrence: DE)
  Receive Date: 20170301
  Receipt Date: 20170301
  Transmission Date: 20170428
  Serious: Yes (Death)
  Sender: FDA-Public Use
  Company Number: DE-ABBVIE-17P-062-1889129-00

PATIENT
  Age: 80 Year
  Sex: Female

DRUGS (1)
  1. DUODOPA [Suspect]
     Active Substance: CARBIDOPA\LEVODOPA
     Indication: PARKINSON^S DISEASE
     Dosage: MD 5.1 ML?CRD 8.0 ML/H?CRN 3.3 ML/H?ED 5.6 ML
     Route: 050
     Dates: start: 20120617

REACTIONS (1)
  - Death [Fatal]

NARRATIVE: CASE EVENT DATE: 20150813
